FAERS Safety Report 9399371 (Version 1)
Quarter: 2013Q3

REPORT INFORMATION
  Report Type: Spontaneous
  Country: ES (occurrence: None)
  Receive Date: 20130710
  Receipt Date: 20130710
  Transmission Date: 20140515
  Serious: Yes (Death, Hospitalization)
  Sender: FDA-Public Use
  Company Number: FK201302395

PATIENT
  Age: 74 Year
  Sex: Male

DRUGS (1)
  1. GEMCITABINE (MANUFACTURER UNKNOWN) (GEMCITABINE) (GEMCITABINE) [Suspect]
     Indication: BLADDER CANCER
     Dosage: CYCLICAL

REACTIONS (3)
  - Pulmonary toxicity [None]
  - General physical health deterioration [None]
  - Dyspnoea [None]
